FAERS Safety Report 11638985 (Version 1)
Quarter: 2015Q4

REPORT INFORMATION
  Report Type: Report from Study
  Country: IN (occurrence: IN)
  Receive Date: 20151018
  Receipt Date: 20151018
  Transmission Date: 20160304
  Serious: Yes (Death, Other)
  Sender: FDA-Public Use
  Company Number: IN-AMGEN-INDNI2015109001

PATIENT

DRUGS (1)
  1. PANITUMUMAB [Suspect]
     Active Substance: PANITUMUMAB
     Indication: COLORECTAL CANCER
     Dosage: 100 MG, UNK
     Route: 042
     Dates: start: 201412

REACTIONS (1)
  - Death [Fatal]

NARRATIVE: CASE EVENT DATE: 20150810
